FAERS Safety Report 5589115-2 (Version None)
Quarter: 2007Q4

REPORT INFORMATION
  Report Type: 
  Country: None (occurrence: None)
  Receive Date: 20071212
  Receipt Date: 20070522
  Transmission Date: 20080405
  Serious: Yes (Other)
  Sender: FDA-Public Use
  Company Number: USA-2007-0027506

PATIENT
  Sex: Male

DRUGS (1)
  1. OXYCODONE HCL [Suspect]
     Indication: DRUG ABUSER
     Dosage: ORAL
     Route: 048

REACTIONS (2)
  - DRUG DEPENDENCE [None]
  - SEXUAL DYSFUNCTION [None]
